FAERS Safety Report 4836168-2 (Version None)
Quarter: 2005Q4

REPORT INFORMATION
  Report Type: 
  Country: None (occurrence: None)
  Receive Date: 20051123
  Receipt Date: 20051110
  Transmission Date: 20060501
  Serious: Yes (Other)
  Sender: FDA-Public Use
  Company Number: PHFR2005GB03723

PATIENT
  Age: 17 Year
  Sex: Male

DRUGS (1)
  1. LAMISIL [Suspect]
     Dosage: 250 MG/DAY
     Route: 048
     Dates: start: 20050601

REACTIONS (5)
  - DEPRESSION [None]
  - FATIGUE [None]
  - INSOMNIA [None]
  - MENTAL DISORDER [None]
  - SELF-INJURIOUS IDEATION [None]
